FAERS Safety Report 21635123 (Version 1)
Quarter: 2022Q4

REPORT INFORMATION
  Report Type: Spontaneous
  Country: GB (occurrence: GB)
  Receive Date: 20221123
  Receipt Date: 20221123
  Transmission Date: 20230112
  Serious: Yes (Hospitalization)
  Sender: FDA-Public Use
  Company Number: GB-SLATE RUN PHARMACEUTICALS-22GB001420

PATIENT

DRUGS (8)
  1. AZITHROMYCIN [Suspect]
     Active Substance: AZITHROMYCIN
     Indication: Chronic obstructive pulmonary disease
     Dosage: UNK
  2. AZITHROMYCIN [Suspect]
     Active Substance: AZITHROMYCIN
     Indication: Mycobacterium avium complex infection
     Dosage: UNK
  3. AMOXICILLIN\CLAVULANATE POTASSIUM [Suspect]
     Active Substance: AMOXICILLIN\CLAVULANATE POTASSIUM
     Indication: Mycobacterium avium complex infection
     Dosage: UNK
  4. AMOXICILLIN\CLAVULANATE POTASSIUM [Suspect]
     Active Substance: AMOXICILLIN\CLAVULANATE POTASSIUM
     Indication: Haemophilus infection
  5. RIFAMPIN [Suspect]
     Active Substance: RIFAMPIN
     Indication: Pulmonary cavitation
     Dosage: UNK
     Route: 048
  6. RIFAMPIN [Suspect]
     Active Substance: RIFAMPIN
     Dosage: UNK, 3/WEEK
  7. ETHAMBUTOL [Suspect]
     Active Substance: ETHAMBUTOL HYDROCHLORIDE
     Indication: Pulmonary cavitation
     Dosage: UNK
  8. ETHAMBUTOL [Suspect]
     Active Substance: ETHAMBUTOL HYDROCHLORIDE
     Dosage: UNK UNK, 3/WEEK

REACTIONS (8)
  - Pulmonary cavitation [Recovering/Resolving]
  - Condition aggravated [Recovering/Resolving]
  - Lung disorder [Recovering/Resolving]
  - Mycobacterium avium complex infection [Recovering/Resolving]
  - Haemophilus infection [Recovered/Resolved]
  - Pathogen resistance [Recovering/Resolving]
  - Off label use [Unknown]
  - Drug ineffective for unapproved indication [Recovering/Resolving]
